FAERS Safety Report 6838787-0 (Version None)
Quarter: 2010Q3

REPORT INFORMATION
  Report Type: 
  Country: None (occurrence: None)
  Receive Date: 20100713
  Receipt Date: 20070627
  Transmission Date: 20110219
  Serious: No
  Sender: FDA-Public Use
  Company Number: US-PFIZER INC-2007036453

PATIENT
  Age: 66 Year
  Sex: Female

DRUGS (9)
  1. CHANTIX [Suspect]
     Indication: SMOKING CESSATION THERAPY
     Route: 048
     Dates: start: 20070309, end: 20070401
  2. ADRUCIL [Suspect]
     Indication: COLON CANCER
     Dates: start: 20070401
  3. LEUCOVORIN CALCIUM [Suspect]
     Indication: COLON CANCER
     Dates: start: 20070401
  4. METFORMIN [Concomitant]
  5. BENICAR [Concomitant]
  6. COREG [Concomitant]
  7. VESICARE [Concomitant]
  8. NEXIUM [Concomitant]
  9. PREMARIN [Concomitant]

REACTIONS (2)
  - NAUSEA [None]
  - STOMATITIS [None]
